FAERS Safety Report 9739988 (Version 6)
Quarter: 2014Q2

REPORT INFORMATION
  Report Type: Report from Study
  Country: JP (occurrence: JP)
  Receive Date: 20131209
  Receipt Date: 20140417
  Transmission Date: 20141212
  Serious: No
  Sender: FDA-Public Use
  Company Number: JP-GLAXOSMITHKLINE-B0944901A

PATIENT
  Age: 50 Year
  Sex: Female

DRUGS (12)
  1. ARZERRA [Suspect]
     Indication: CHRONIC LYMPHOCYTIC LEUKAEMIA
     Dosage: 2000MG PER DAY
     Route: 042
     Dates: start: 20131022, end: 20131022
  2. ARZERRA [Suspect]
     Indication: CHRONIC LYMPHOCYTIC LEUKAEMIA
     Dosage: 2000MG PER DAY
     Route: 042
     Dates: start: 20131126, end: 20131126
  3. ARZERRA [Suspect]
     Indication: CHRONIC LYMPHOCYTIC LEUKAEMIA
     Dosage: 2000MG PER DAY
     Route: 042
     Dates: start: 20140204, end: 20140204
  4. PREDNISOLONE [Concomitant]
     Dosage: 100MG PER DAY
     Route: 042
     Dates: start: 20131022, end: 20131022
  5. PREDNISOLONE [Concomitant]
     Dosage: 100MG PER DAY
     Route: 042
     Dates: start: 20131126, end: 20131126
  6. PREDNISOLONE [Concomitant]
     Dosage: 100MG PER DAY
     Route: 042
     Dates: start: 20140204, end: 20140204
  7. ACETAMINOPHEN [Concomitant]
     Dosage: 400MG PER DAY
     Route: 048
     Dates: start: 20131022, end: 20131022
  8. ACETAMINOPHEN [Concomitant]
     Dosage: 400MG PER DAY
     Route: 048
     Dates: start: 20131126, end: 20131126
  9. ACETAMINOPHEN [Concomitant]
     Dosage: 400MG PER DAY
     Route: 048
     Dates: start: 20140204, end: 20140204
  10. HYDROXYZINE HYDROCHLORIDE [Concomitant]
     Dosage: 25MG PER DAY
     Route: 048
     Dates: start: 20131022, end: 20131022
  11. HYDROXYZINE HYDROCHLORIDE [Concomitant]
     Dosage: 25MG PER DAY
     Route: 048
     Dates: start: 20131126, end: 20131126
  12. HYDROXYZINE HYDROCHLORIDE [Concomitant]
     Dosage: 25MG PER DAY
     Route: 048
     Dates: start: 20140204, end: 20140204

REACTIONS (1)
  - Neuropathy peripheral [Recovering/Resolving]
